FAERS Safety Report 5012983-X (Version None)
Quarter: 2006Q2

REPORT INFORMATION
  Report Type: 
  Country: None (occurrence: None)
  Receive Date: 20060530
  Receipt Date: 20060519
  Transmission Date: 20061013
  Serious: Yes (Life-Threatening, Hospitalization)
  Sender: FDA-Public Use
  Company Number: IT-GILEAD-2006-0009604

PATIENT
  Sex: Male
  Weight: 65 kg

DRUGS (2)
  1. ADEFOVIR DIPIVOXIL [Suspect]
     Indication: HEPATITIS B
     Route: 048
     Dates: start: 20051025, end: 20060504
  2. PEGASYS [Suspect]
     Indication: HEPATITIS B
     Route: 058
     Dates: start: 20051025, end: 20060502

REACTIONS (3)
  - HAEMATURIA [None]
  - PURPURA [None]
  - THROMBOCYTOPENIA [None]
